FAERS Safety Report 6307924-9 (Version None)
Quarter: 2009Q3

REPORT INFORMATION
  Report Type: 
  Country: None (occurrence: None)
  Receive Date: 20090813
  Receipt Date: 20090807
  Transmission Date: 20100115
  Serious: Yes (Disabling)
  Sender: FDA-Public Use
  Company Number: GT-ASTRAZENECA-2009UW21893

PATIENT
  Age: 58 Year
  Sex: Female
  Weight: 50.3 kg

DRUGS (1)
  1. CRESTOR [Suspect]
     Indication: HYPERCHOLESTEROLAEMIA
     Route: 048
     Dates: start: 20080530, end: 20090324

REACTIONS (1)
  - BACK PAIN [None]
